FAERS Safety Report 12239151 (Version 2)
Quarter: 2016Q2

REPORT INFORMATION
  Report Type: Spontaneous
  Country: US (occurrence: US)
  Receive Date: 20160405
  Receipt Date: 20160615
  Transmission Date: 20160815
  Serious: Yes (Other)
  Sender: FDA-Public Use
  Company Number: US-JNJFOC-20160327865

PATIENT
  Sex: Female
  Weight: 93 kg

DRUGS (15)
  1. FERROUS SULFATE. [Concomitant]
     Active Substance: FERROUS SULFATE
     Indication: ANAEMIA
     Route: 048
  2. ZOFRAN [Concomitant]
     Active Substance: ONDANSETRON HYDROCHLORIDE
     Route: 048
  3. CLARITIN [Concomitant]
     Active Substance: LORATADINE
     Route: 048
  4. PROAIR HFA [Concomitant]
     Active Substance: ALBUTEROL SULFATE
     Dosage: 2 PUFFS
     Route: 055
     Dates: start: 20130730
  5. ZYRTEC PO [Concomitant]
     Route: 048
  6. ATIVAN [Concomitant]
     Active Substance: LORAZEPAM
     Indication: NAUSEA
     Route: 048
  7. TUMS ULTRA [Concomitant]
     Active Substance: CALCIUM CARBONATE
     Dosage: TAKE 1-2 TABS BY MOUTH EVERY BEDTIME
     Route: 048
  8. ZOLOFT [Concomitant]
     Active Substance: SERTRALINE HYDROCHLORIDE
     Route: 048
     Dates: start: 20151022
  9. PRILOSEC [Concomitant]
     Active Substance: OMEPRAZOLE MAGNESIUM
     Route: 048
     Dates: start: 20151102
  10. SINGULAIR [Concomitant]
     Active Substance: MONTELUKAST SODIUM
     Route: 048
     Dates: start: 20150802
  11. ASMANEX [Concomitant]
     Active Substance: MOMETASONE FUROATE
     Dosage: (120 DOSES) AEFB??2 PUFFS
     Route: 055
     Dates: start: 20130722
  12. DRISDOL [Concomitant]
     Active Substance: ERGOCALCIFEROL
     Dosage: 50,000 UNIT CAPSULE
     Route: 048
  13. IMBRUVICA [Suspect]
     Active Substance: IBRUTINIB
     Indication: WALDENSTROM^S MACROGLOBULINAEMIA
     Dosage: 3 140 MG CAPSULES BY MOUTH EVERY DAY
     Route: 048
     Dates: start: 20151118, end: 20160329
  14. ASCORBIC ACID. [Concomitant]
     Active Substance: ASCORBIC ACID
     Route: 048
  15. NEURONTIN [Concomitant]
     Active Substance: GABAPENTIN
     Route: 048

REACTIONS (3)
  - Purpura [Recovered/Resolved]
  - Rash [Recovered/Resolved]
  - Diarrhoea [Recovered/Resolved]
